FAERS Safety Report 21544477 (Version 2)
Quarter: 2022Q4

REPORT INFORMATION
  Report Type: Report from Study
  Country: PL (occurrence: PL)
  Receive Date: 20221102
  Receipt Date: 20221123
  Transmission Date: 20230113
  Serious: Yes (Hospitalization, Other)
  Sender: FDA-Public Use
  Company Number: PL-BRISTOL-MYERS SQUIBB COMPANY-2022-128474

PATIENT
  Age: 29 Year
  Sex: Female
  Weight: 72.8 kg

DRUGS (26)
  1. DEUCRAVACITINIB [Suspect]
     Active Substance: DEUCRAVACITINIB
     Indication: Systemic lupus erythematosus
     Dosage: MOST RECENT DOSE RECEIVED ON 17-OCT-2022.?ACTION TAKEN: DRUG INTERRUPTED?TOTAL DAILY DOSE: 5
     Route: 048
     Dates: start: 20201019
  2. CELLCEPT [Concomitant]
     Active Substance: MYCOPHENOLATE MOFETIL
     Indication: Systemic lupus erythematosus
     Route: 048
     Dates: start: 20170128, end: 20170212
  3. CELLCEPT [Concomitant]
     Active Substance: MYCOPHENOLATE MOFETIL
     Dosage: ONGOING
     Route: 048
     Dates: start: 20190502
  4. CELLCEPT [Concomitant]
     Active Substance: MYCOPHENOLATE MOFETIL
     Route: 048
     Dates: start: 20170713, end: 20190206
  5. CELLCEPT [Concomitant]
     Active Substance: MYCOPHENOLATE MOFETIL
     Route: 048
     Dates: start: 20190207, end: 20190501
  6. CELLCEPT [Concomitant]
     Active Substance: MYCOPHENOLATE MOFETIL
     Route: 048
     Dates: start: 20220131
  7. ASPIRIN [Concomitant]
     Active Substance: ASPIRIN
     Indication: Thrombosis prophylaxis
     Dosage: DAILY
     Route: 048
     Dates: start: 20190215, end: 20200419
  8. ASPIRIN [Concomitant]
     Active Substance: ASPIRIN
     Route: 048
     Dates: start: 20220214
  9. ASPIRIN [Concomitant]
     Active Substance: ASPIRIN
     Route: 048
     Dates: start: 20200420, end: 20200511
  10. ASPIRIN [Concomitant]
     Active Substance: ASPIRIN
     Route: 048
     Dates: start: 20200512, end: 20200603
  11. ASPIRIN [Concomitant]
     Active Substance: ASPIRIN
     Dosage: ONGOING
     Route: 048
     Dates: start: 20200605
  12. VITRUM D3 FORTE [Concomitant]
     Indication: Vitamin D deficiency
     Dosage: ONGOING.
     Route: 048
     Dates: start: 20191016
  13. CALCIUM CARBONATE [Concomitant]
     Active Substance: CALCIUM CARBONATE
     Indication: Osteoporosis prophylaxis
     Dosage: ONGOING
     Route: 048
     Dates: start: 20150607
  14. BENCYCLANUM [Concomitant]
     Indication: Raynaud^s phenomenon
     Dosage: ONGOING
     Route: 048
     Dates: start: 20190916
  15. ORTHO EVRA [Concomitant]
     Active Substance: ETHINYL ESTRADIOL\NORELGESTROMIN
     Indication: Contraception
     Dosage: 3 PUFF QM?ONGOING
     Route: 062
     Dates: start: 201909
  16. NEBIVOLOL [Concomitant]
     Active Substance: NEBIVOLOL
     Indication: Tachycardia
     Dosage: ONGOING.
     Route: 048
     Dates: start: 20220210
  17. ALLERTEC [CETIRIZINE HYDROCHLORIDE] [Concomitant]
     Indication: Acne
     Route: 048
     Dates: start: 20191121, end: 20191125
  18. ACETAMINOPHEN [Concomitant]
     Active Substance: ACETAMINOPHEN
     Indication: Headache
     Dosage: PRN
     Route: 048
     Dates: start: 20191125, end: 20191125
  19. ACETAMINOPHEN [Concomitant]
     Active Substance: ACETAMINOPHEN
     Dosage: PRN
     Route: 048
     Dates: start: 20191129, end: 20191129
  20. ACETAMINOPHEN [Concomitant]
     Active Substance: ACETAMINOPHEN
     Route: 048
     Dates: start: 20200303, end: 20200306
  21. NORMACLIN [Concomitant]
     Indication: Acne
     Dosage: 1 APPLICATION
     Route: 061
     Dates: start: 20191202, end: 20191208
  22. IBUPROFEN [Concomitant]
     Active Substance: IBUPROFEN
     Indication: Headache
     Route: 048
     Dates: start: 20200106, end: 20200106
  23. IBUPROFEN [Concomitant]
     Active Substance: IBUPROFEN
     Route: 048
     Dates: start: 20200117, end: 20200117
  24. IBUPROFEN [Concomitant]
     Active Substance: IBUPROFEN
     Route: 048
     Dates: start: 20200124, end: 20200124
  25. IBUPROFEN [Concomitant]
     Active Substance: IBUPROFEN
     Route: 048
     Dates: start: 20200313, end: 20200314
  26. IBUPROFEN [Concomitant]
     Active Substance: IBUPROFEN
     Route: 048
     Dates: start: 20200514, end: 20200515

REACTIONS (2)
  - Appendicitis [Recovering/Resolving]
  - Peritonitis [Unknown]

NARRATIVE: CASE EVENT DATE: 20221017
